FAERS Safety Report 4383057-6 (Version None)
Quarter: 2004Q2

REPORT INFORMATION
  Report Type: 
  Country: None (occurrence: None)
  Receive Date: 20040610
  Receipt Date: 20040326
  Transmission Date: 20050107
  Serious: No
  Sender: FDA-Public Use
  Company Number: US-JNJFOC-20040301059

PATIENT
  Age: 69 Year
  Sex: Male
  Weight: 75.2971 kg

DRUGS (11)
  1. NATRECOR [Suspect]
     Indication: CARDIAC FAILURE CONGESTIVE
     Dosage: 0.01; 0.02 UG/KG/MIN
  2. ISOSORBIDE (ISOSORBIDE) [Concomitant]
  3. LANOXIN [Concomitant]
  4. LEVOTHYROXINE SODIUM [Concomitant]
  5. LASIX [Concomitant]
  6. COREG [Concomitant]
  7. DIOVAN [Concomitant]
  8. LIPITOR [Concomitant]
  9. ACETYLSALICYLIC ACID SRT [Concomitant]
  10. SPIROLACTONE (SPIRONOLACTONE) [Concomitant]
  11. COUMADIN [Concomitant]

REACTIONS (3)
  - ARTHRALGIA [None]
  - ARTHRITIS [None]
  - JOINT SWELLING [None]
